FAERS Safety Report 8511583-4 (Version None)
Quarter: 2012Q3

REPORT INFORMATION
  Report Type: 
  Country: None (occurrence: None)
  Receive Date: 20120716
  Receipt Date: 20120710
  Transmission Date: 20120928
  Serious: Yes (Hospitalization)
  Sender: FDA-Public Use
  Company Number: PHEH2012US013825

PATIENT
  Age: 62 Year
  Sex: Female

DRUGS (1)
  1. RECLAST [Suspect]
     Indication: OSTEOPOROSIS POSTMENOPAUSAL
     Dosage: 5 MG, YEARLY
     Route: 042
     Dates: start: 20120629

REACTIONS (8)
  - WHITE BLOOD CELL COUNT INCREASED [None]
  - BONE PAIN [None]
  - HYPOTENSION [None]
  - NAUSEA [None]
  - VOMITING [None]
  - INFLUENZA LIKE ILLNESS [None]
  - CHILLS [None]
  - HEADACHE [None]
